FAERS Safety Report 10663446 (Version 1)
Quarter: 2014Q4

REPORT INFORMATION
  Report Type: Report from Study
  Country: US (occurrence: US)
  Receive Date: 20141218
  Receipt Date: 20141218
  Transmission Date: 20150529
  Serious: Yes (Hospitalization)
  Sender: FDA-Public Use
  Company Number: US-JNJFOC-20141209008

PATIENT
  Age: 56 Year
  Sex: Female
  Weight: 48.54 kg

DRUGS (2)
  1. NEOSPORIN ECZEMA ESSENTIALS DAILY MOISTURIZING [Suspect]
     Active Substance: OATMEAL
     Indication: PRODUCT USED FOR UNKNOWN INDICATION
     Dosage: REF. #2014-09-0049
     Route: 061
     Dates: start: 20141029, end: 20141202
  2. COLLOIDAL OATMEAL [Suspect]
     Active Substance: OATMEAL
     Indication: PRODUCT USED FOR UNKNOWN INDICATION
     Dosage: REF. #2014-10-0040
     Route: 061
     Dates: start: 20141029, end: 20141202

REACTIONS (1)
  - Hernia [Recovering/Resolving]

NARRATIVE: CASE EVENT DATE: 20141202
